FAERS Safety Report 10248759 (Version 1)
Quarter: 2014Q2

REPORT INFORMATION
  Report Type: Spontaneous
  Country: FR (occurrence: None)
  Receive Date: 20140618
  Receipt Date: 20140618
  Transmission Date: 20141212
  Serious: Yes (Hospitalization)
  Sender: FDA-Public Use
  Company Number: B1002271A

PATIENT
  Age: 63 Year
  Sex: Male

DRUGS (12)
  1. PAROXETINE HYDROCHLORIDE [Suspect]
     Indication: PRODUCT USED FOR UNKNOWN INDICATION
     Dates: start: 20130814
  2. METHOTREXATE [Suspect]
     Indication: PRODUCT USED FOR UNKNOWN INDICATION
     Route: 048
     Dates: start: 20130820, end: 20130912
  3. PREDNISOLONE [Suspect]
     Indication: PRODUCT USED FOR UNKNOWN INDICATION
     Dosage: SEE DOSAGE TEXT
     Route: 048
     Dates: start: 20130820
  4. PARACETAMOL [Suspect]
     Indication: PRODUCT USED FOR UNKNOWN INDICATION
     Route: 048
     Dates: start: 20130730, end: 20130930
  5. HYDROXYZINE HYDROCHLORIDE [Suspect]
     Indication: PRODUCT USED FOR UNKNOWN INDICATION
     Route: 048
     Dates: end: 20130913
  6. TRAMADOL HYDROCHLORIDE [Suspect]
     Indication: PRODUCT USED FOR UNKNOWN INDICATION
     Dates: start: 20130903
  7. MORPHINE [Concomitant]
  8. OXYCODONE HYDROCHLORIDE [Concomitant]
  9. METFORMIN HYDROCHLORIDE [Concomitant]
  10. PROTON PUMP INHIBITORS [Concomitant]
  11. REPAGLINIDE [Concomitant]
  12. NEBIVOLOL HCL [Concomitant]

REACTIONS (1)
  - Hepatocellular injury [None]
